FAERS Safety Report 12173697 (Version 1)
Quarter: 2016Q1

REPORT INFORMATION
  Report Type: Spontaneous
  Country: US (occurrence: US)
  Receive Date: 20160314
  Receipt Date: 20160314
  Transmission Date: 20160526
  Serious: Yes (Other)
  Sender: FDA-Public Use
  Company Number: US-009507513-0902USA00513

PATIENT
  Age: 75 Year
  Sex: Female
  Weight: 56.69 kg

DRUGS (3)
  1. VYTORIN [Suspect]
     Active Substance: EZETIMIBE\SIMVASTATIN
     Indication: BLOOD CHOLESTEROL ABNORMAL
     Dosage: 1 TABLET DAILY
     Route: 048
  2. VITAMINS (UNSPECIFIED) [Concomitant]
     Active Substance: VITAMINS
     Indication: NUTRITIONAL SUPPLEMENTATION
     Dosage: 1 TABLET DAILY
     Route: 048
  3. LUBRIDERM BATH AND SHOWER OIL [Suspect]
     Active Substance: MINERAL OIL
     Indication: DRY SKIN
     Dosage: HANDFUL FACE 3-4X, BODY 1X
     Route: 061
     Dates: end: 20090119

REACTIONS (6)
  - Eye irritation [Not Recovered/Not Resolved]
  - Erythema [Not Recovered/Not Resolved]
  - Condition aggravated [Not Recovered/Not Resolved]
  - Application site reaction [Not Recovered/Not Resolved]
  - Eye swelling [Not Recovered/Not Resolved]
  - Pain [Not Recovered/Not Resolved]
